FAERS Safety Report 4552439-1 (Version None)
Quarter: 2005Q1

REPORT INFORMATION
  Report Type: 
  Country: None (occurrence: None)
  Receive Date: 20050112
  Receipt Date: 20050112
  Transmission Date: 20050727
  Serious: Yes (Other)
  Sender: FDA-Public Use
  Company Number: None

PATIENT
  Age: 62 Year
  Sex: Female

DRUGS (1)
  1. CITALOPRAM 20 MG EON [Suspect]
     Indication: DEPRESSION
     Dosage: ONE DAILY BY MOUTH [TAKING BRAND FOR 5-6 YEARS, GENERIC FOR 1 MONTH]

REACTIONS (3)
  - ABNORMAL DREAMS [None]
  - DIZZINESS [None]
  - PHARMACEUTICAL PRODUCT COMPLAINT [None]
